FAERS Safety Report 4549666-6 (Version None)
Quarter: 2005Q1

REPORT INFORMATION
  Report Type: 
  Country: None (occurrence: None)
  Receive Date: 20050111
  Receipt Date: 20050107
  Transmission Date: 20050727
  Serious: Yes (Other)
  Sender: FDA-Public Use
  Company Number: 2005000268

PATIENT
  Age: 25 Year
  Sex: Female

DRUGS (2)
  1. LAMICTAL [Suspect]
     Route: 048
  2. KEPPRA [Suspect]
     Route: 048

REACTIONS (4)
  - BLOOD CREATINE PHOSPHOKINASE INCREASED [None]
  - DEPRESSION [None]
  - INTENTIONAL MISUSE [None]
  - SUICIDE ATTEMPT [None]
